FAERS Safety Report 16552080 (Version 1)
Quarter: 2019Q3

REPORT INFORMATION
  Report Type: Spontaneous
  Country: US (occurrence: US)
  Receive Date: 20190710
  Receipt Date: 20190710
  Transmission Date: 20191004
  Serious: Yes (Hospitalization, Other)
  Sender: FDA-Public Use
  Company Number: US-MYLANLABS-2019M1063700

PATIENT
  Age: 18 Year
  Sex: Female

DRUGS (1)
  1. FLUOXETINE [Suspect]
     Active Substance: FLUOXETINE HYDROCHLORIDE
     Indication: ANTIDEPRESSANT THERAPY
     Dosage: BEING ADMINISTERED FOR 1.5 YEARS
     Route: 065

REACTIONS (10)
  - Hyponatraemia [Recovered/Resolved]
  - Urine osmolarity decreased [Recovered/Resolved]
  - Asthenia [Recovering/Resolving]
  - Hypophosphataemia [Recovering/Resolving]
  - Hypotension [Recovering/Resolving]
  - Bradycardia [Recovered/Resolved]
  - Hypokalaemia [Recovering/Resolving]
  - Blood osmolarity decreased [Recovered/Resolved]
  - Hypoglycaemia [Recovering/Resolving]
  - Lethargy [Recovering/Resolving]

NARRATIVE: CASE EVENT DATE: 20170814
